FAERS Safety Report 8154937-0 (Version None)
Quarter: 2012Q1

REPORT INFORMATION
  Report Type: 
  Country: None (occurrence: None)
  Receive Date: 20120221
  Receipt Date: 20120216
  Transmission Date: 20120608
  Serious: Yes (Hospitalization, Other)
  Sender: FDA-Public Use
  Company Number: PHHO2011NL11251

PATIENT
  Sex: Female
  Weight: 46 kg

DRUGS (11)
  1. MYCOPHENOLIC ACID [Suspect]
     Indication: RENAL TRANSPLANT
     Dosage: 360 MG, BID
     Dates: start: 20110605
  2. SIMULECT [Suspect]
     Indication: RENAL TRANSPLANT
     Dosage: 5 MG, BID
     Dates: start: 20110605, end: 20110504
  3. SELOKEEN [Concomitant]
     Indication: HYPERTENSION
     Dosage: UNK
     Dates: start: 20110410
  4. TEMSIROLIMUS [Concomitant]
     Indication: RENAL TRANSPLANT
     Dosage: 10 MG, UNK
     Dates: start: 20110410
  5. AMLODIPINE [Concomitant]
     Indication: HYPERTENSION
     Dosage: UNK
     Dates: start: 20110410
  6. METOPROLOL TARTRATE [Concomitant]
     Indication: HYPERTENSION
     Dosage: UNK
     Dates: start: 20110410
  7. ALFACALCIDOL [Concomitant]
     Indication: OSTEOPOROSIS
     Dosage: UNK
     Dates: start: 20110410
  8. CALCIUM CARBONATE [Concomitant]
     Indication: OSTEOPOROSIS
     Dosage: UNK
     Dates: start: 20110410
  9. PROGRAF [Suspect]
     Indication: RENAL TRANSPLANT
     Dosage: 4 MG, BID
     Dates: start: 20110605
  10. ZANTAC [Concomitant]
  11. NEXIUM [Concomitant]
     Indication: PROPHYLAXIS
     Dosage: UNK
     Dates: start: 20110410

REACTIONS (3)
  - UPPER RESPIRATORY TRACT INFECTION [None]
  - PYELONEPHRITIS [None]
  - URINARY TRACT INFECTION [None]
